FAERS Safety Report 15616945 (Version 1)
Quarter: 2018Q4

REPORT INFORMATION
  Report Type: Spontaneous
  Country: FR (occurrence: FR)
  Receive Date: 20181114
  Receipt Date: 20181114
  Transmission Date: 20190205
  Serious: Yes (Other)
  Sender: FDA-Public Use
  Company Number: FR-PROVELL PHARMACEUTICALS-2058837

PATIENT
  Age: 77 Year
  Sex: Female

DRUGS (8)
  1. LASILIX [Concomitant]
     Active Substance: FUROSEMIDE
  2. EUTHYROX [Suspect]
     Active Substance: LEVOTHYROXINE SODIUM
     Route: 048
  3. VASTEN [Concomitant]
     Active Substance: PRAVASTATIN SODIUM
  4. DETENSIEL [Concomitant]
     Active Substance: BISOPROLOL FUMARATE
  5. METOJECT [Concomitant]
     Active Substance: METHOTREXATE SODIUM
  6. SPECIAFOLDINE [Concomitant]
     Active Substance: FOLIC ACID
  7. DIFFU K [Concomitant]
     Active Substance: POTASSIUM CHLORIDE
  8. EUTHYROX [Suspect]
     Active Substance: LEVOTHYROXINE SODIUM
     Indication: HYPOTHYROIDISM
     Route: 048
     Dates: start: 1988, end: 20180731

REACTIONS (2)
  - Blood thyroid stimulating hormone increased [Recovering/Resolving]
  - Asthenia [Recovered/Resolved]

NARRATIVE: CASE EVENT DATE: 201802
